FAERS Safety Report 8511687-6 (Version None)
Quarter: 2012Q3

REPORT INFORMATION
  Report Type: 
  Country: None (occurrence: None)
  Receive Date: 20120710
  Receipt Date: 20120710
  Transmission Date: 20120928
  Serious: Yes (Hospitalization)
  Sender: FDA-Public Use
  Company Number: None

PATIENT
  Sex: Female
  Weight: 65.8 kg

DRUGS (1)
  1. TEMOZOLOMIDE [Suspect]
     Dosage: 4200 MG

REACTIONS (4)
  - WHITE BLOOD CELL COUNT DECREASED [None]
  - LYMPHOPENIA [None]
  - PLATELET COUNT DECREASED [None]
  - NEUTROPENIA [None]
